FAERS Safety Report 17677274 (Version 2)
Quarter: 2020Q2

REPORT INFORMATION
  Report Type: Report from Study
  Country: US (occurrence: US)
  Receive Date: 20200416
  Receipt Date: 20200429
  Transmission Date: 20200714
  Serious: Yes (Death, Hospitalization)
  Sender: FDA-Public Use
  Company Number: US-ACTELION-A-NJ2020-204195

PATIENT
  Age: 65 Year
  Sex: Female

DRUGS (3)
  1. VELETRI [Suspect]
     Active Substance: EPOPROSTENOL
     Indication: PULMONARY ARTERIAL HYPERTENSION
     Dosage: 94 NG/KG, PER MIN
     Route: 042
     Dates: start: 20200404, end: 20200415
  2. VELETRI [Suspect]
     Active Substance: EPOPROSTENOL
     Dosage: 67 NG/KG, PER MIN
     Route: 042
     Dates: start: 20200404
  3. OPSUMIT [Suspect]
     Active Substance: MACITENTAN
     Indication: PULMONARY ARTERIAL HYPERTENSION
     Dosage: 10 MG, QD
     Route: 048
     Dates: end: 20200415

REACTIONS (2)
  - Renal impairment [Unknown]
  - Death [Fatal]

NARRATIVE: CASE EVENT DATE: 20200415
